FAERS Safety Report 17693632 (Version 4)
Quarter: 2020Q4

REPORT INFORMATION
  Report Type: Spontaneous
  Country: US (occurrence: US)
  Receive Date: 20200422
  Receipt Date: 20201007
  Transmission Date: 20210113
  Serious: No
  Sender: FDA-Public Use
  Company Number: US-BAYER-2020-055744

PATIENT
  Age: 7 Year
  Sex: Male

DRUGS (3)
  1. KOGENATE FS [Suspect]
     Active Substance: ANTIHEMOPHILIC FACTOR, HUMAN RECOMBINANT
     Dosage: 1500 U, ONCE, AS PREVENTION IN THE EMERGENCY ROOM
     Route: 042
     Dates: start: 20200929, end: 20200929
  2. KOGENATE FS [Suspect]
     Active Substance: ANTIHEMOPHILIC FACTOR, HUMAN RECOMBINANT
     Route: 042
  3. KOGENATE FS [Suspect]
     Active Substance: ANTIHEMOPHILIC FACTOR, HUMAN RECOMBINANT
     Dosage: 1000 U, ONCE TO TREAT THE LIMB INJURY
     Route: 042
     Dates: start: 202004, end: 202004

REACTIONS (5)
  - Limb injury [Recovered/Resolved]
  - Accident at home [Recovered/Resolved]
  - Head injury [None]
  - Limb injury [Recovered/Resolved]
  - Fall [None]

NARRATIVE: CASE EVENT DATE: 20200328
